FAERS Safety Report 15151036 (Version 2)
Quarter: 2018Q3

REPORT INFORMATION
  Report Type: Spontaneous
  Country: US (occurrence: US)
  Receive Date: 20180716
  Receipt Date: 20180924
  Transmission Date: 20181010
  Serious: Yes (Other)
  Sender: FDA-Public Use
  Company Number: US-SA-2018SA186661

PATIENT
  Age: 56 Year
  Sex: Female
  Weight: 113 kg

DRUGS (2)
  1. TAXOTERE [Suspect]
     Active Substance: DOCETAXEL
     Dosage: UNK Q2W
     Route: 042
     Dates: start: 20021001, end: 20021001
  2. TAXOTERE [Suspect]
     Active Substance: DOCETAXEL
     Dosage: UNK Q2W
     Route: 042
     Dates: start: 20040228, end: 20040228

REACTIONS (2)
  - Alopecia [Not Recovered/Not Resolved]
  - Psychological trauma [Unknown]
